FAERS Safety Report 19790014 (Version 1)
Quarter: 2021Q3

REPORT INFORMATION
  Report Type: Spontaneous
  Country: PT (occurrence: US)
  Receive Date: 20210905
  Receipt Date: 20210905
  Transmission Date: 20211014
  Serious: Yes (Disabling, Other)
  Sender: FDA-Public Use
  Company Number: US-GE HEALTHCARE LIFE SCIENCES-2021CSU004430

PATIENT
  Age: 59 Year
  Sex: Female

DRUGS (18)
  1. GADOLINIUM (UNSPECIFIED) [Suspect]
     Active Substance: GADOLINIUM
     Indication: TINNITUS
  2. GADOLINIUM (UNSPECIFIED) [Suspect]
     Active Substance: GADOLINIUM
     Indication: MAGNETIC RESONANCE IMAGING
     Dosage: UNK UNK, SINGLE
     Route: 065
  3. GADOLINIUM (UNSPECIFIED) [Suspect]
     Active Substance: GADOLINIUM
     Indication: ANGIOGRAM
  4. GADOLINIUM (UNSPECIFIED) [Suspect]
     Active Substance: GADOLINIUM
     Indication: BURNING SENSATION
  5. GADOBUTROL. [Suspect]
     Active Substance: GADOBUTROL
     Indication: BURNING SENSATION
  6. GADOLINIUM (UNSPECIFIED) [Suspect]
     Active Substance: GADOLINIUM
     Indication: MUSCLE INJURY
  7. GADOLINIUM (UNSPECIFIED) [Suspect]
     Active Substance: GADOLINIUM
     Indication: PAIN IN EXTREMITY
  8. GADOBUTROL. [Suspect]
     Active Substance: GADOBUTROL
     Indication: INSOMNIA
  9. GADOLINIUM (UNSPECIFIED) [Suspect]
     Active Substance: GADOLINIUM
     Indication: ARTHROGRAM
  10. GADOBUTROL. [Suspect]
     Active Substance: GADOBUTROL
     Indication: MUSCLE INJURY
  11. GADOBUTROL. [Suspect]
     Active Substance: GADOBUTROL
     Indication: ARTHROGRAM
  12. GADOBUTROL. [Suspect]
     Active Substance: GADOBUTROL
     Indication: VISION BLURRED
  13. GADOBUTROL. [Suspect]
     Active Substance: GADOBUTROL
     Indication: ANGIOGRAM
  14. GADOLINIUM (UNSPECIFIED) [Suspect]
     Active Substance: GADOLINIUM
     Indication: VISION BLURRED
  15. GADOLINIUM (UNSPECIFIED) [Suspect]
     Active Substance: GADOLINIUM
     Indication: INSOMNIA
  16. GADOBUTROL. [Suspect]
     Active Substance: GADOBUTROL
     Indication: PAIN IN EXTREMITY
  17. GADOBUTROL. [Suspect]
     Active Substance: GADOBUTROL
     Indication: TINNITUS
  18. GADOBUTROL. [Suspect]
     Active Substance: GADOBUTROL
     Indication: MAGNETIC RESONANCE IMAGING
     Dosage: ?PRECIPITATING DOSE? OF 0.1 MMOL/KG
     Route: 065

REACTIONS (1)
  - Gadolinium deposition disease [Unknown]
